FAERS Safety Report 9657169 (Version 3)
Quarter: 2013Q4

REPORT INFORMATION
  Report Type: Report from Study
  Country: SG (occurrence: SG)
  Receive Date: 20131030
  Receipt Date: 20131108
  Transmission Date: 20140711
  Serious: Yes (Hospitalization)
  Sender: FDA-Public Use
  Company Number: SG-SA-2013SA104566

PATIENT
  Age: 68 Year
  Sex: Male
  Weight: 51.8 kg

DRUGS (19)
  1. AFLIBERCEPT [Suspect]
     Indication: COLORECTAL CANCER
     Route: 041
     Dates: start: 20130729, end: 20130729
  2. AFLIBERCEPT [Suspect]
     Indication: COLORECTAL CANCER
     Route: 041
     Dates: start: 20131010, end: 20131010
  3. 5-FU [Suspect]
     Indication: COLORECTAL CANCER
     Route: 040
     Dates: start: 20130729, end: 20130729
  4. 5-FU [Suspect]
     Indication: COLORECTAL CANCER
     Route: 041
     Dates: start: 20131010, end: 20131010
  5. 5-FU [Suspect]
     Indication: COLORECTAL CANCER
     Route: 040
     Dates: start: 20131010, end: 20131010
  6. 5-FU [Suspect]
     Indication: COLORECTAL CANCER
     Route: 041
     Dates: start: 20130729, end: 20130729
  7. IRINOTECAN [Suspect]
     Indication: COLORECTAL CANCER
     Route: 041
     Dates: start: 20130729, end: 20130729
  8. IRINOTECAN [Suspect]
     Indication: COLORECTAL CANCER
     Route: 041
     Dates: start: 20131010, end: 20131010
  9. LEUCOVORIN [Suspect]
     Indication: COLORECTAL CANCER
     Route: 041
     Dates: start: 20130729, end: 20130729
  10. LEUCOVORIN [Suspect]
     Indication: COLORECTAL CANCER
     Route: 041
     Dates: start: 20130917, end: 20130917
  11. LOPERAMIDE [Concomitant]
     Dates: start: 20130607
  12. ENALAPRIL [Concomitant]
     Dates: start: 20130725
  13. DEXAMETHASONE [Concomitant]
     Dates: start: 20130730
  14. BENADRYL [Concomitant]
     Dates: start: 20130729
  15. PANADOL [Concomitant]
     Dates: start: 20130729
  16. RANITIDINE [Concomitant]
     Dates: start: 20130729
  17. ONDANSETRON [Concomitant]
     Dates: start: 20130729
  18. ATROPINE [Concomitant]
     Dates: start: 20130729
  19. POTASSIUM CHLORIDE [Concomitant]
     Dates: start: 20130917

REACTIONS (1)
  - Gallbladder perforation [Recovered/Resolved]
